FAERS Safety Report 18928246 (Version 1)
Quarter: 2021Q1

REPORT INFORMATION
  Report Type: Spontaneous
  Country: EG (occurrence: EG)
  Receive Date: 20210223
  Receipt Date: 20210223
  Transmission Date: 20210420
  Serious: Yes (Other)
  Sender: FDA-Public Use
  Company Number: EG-HIKMA PHARMACEUTICALS USA INC.-EG-H14001-21-00792

PATIENT
  Sex: Male

DRUGS (7)
  1. UTORAL [Suspect]
     Active Substance: FLUOROURACIL
     Indication: COLON CANCER
     Route: 040
     Dates: start: 20201208, end: 20201209
  2. NYRIN [Suspect]
     Active Substance: LEUCOVORIN CALCIUM
     Indication: COLON CANCER
     Dosage: 300MG WITH CONCENTRATION OF 50MG
     Route: 042
     Dates: start: 20201208, end: 20201209
  3. RISEK [Concomitant]
     Indication: PRODUCT USED FOR UNKNOWN INDICATION
     Route: 042
     Dates: start: 20201208
  4. UTORAL [Suspect]
     Active Substance: FLUOROURACIL
     Dosage: WITH CONCENTRATION OF 500MG
     Route: 041
     Dates: start: 20201208, end: 20201209
  5. DINITRA [Concomitant]
     Indication: PRODUCT USED FOR UNKNOWN INDICATION
     Route: 060
     Dates: start: 20201208
  6. IRINOTECAN [Suspect]
     Active Substance: IRINOTECAN
     Indication: COLON CANCER
     Dosage: 300MG WITH CONCENTRATION OF 100MG INTRAVENOUSLY
     Route: 042
     Dates: start: 20201208, end: 20201209
  7. GRANITRYL [Concomitant]
     Indication: PRODUCT USED FOR UNKNOWN INDICATION
     Route: 042
     Dates: start: 20201208

REACTIONS (3)
  - Seizure [Recovered/Resolved]
  - Somnolence [Recovered/Resolved]
  - Fall [Recovered/Resolved]

NARRATIVE: CASE EVENT DATE: 20201209
